FAERS Safety Report 5523938-0 (Version None)
Quarter: 2007Q4

REPORT INFORMATION
  Report Type: 
  Country: None (occurrence: None)
  Receive Date: 20071121
  Receipt Date: 20071115
  Transmission Date: 20080405
  Serious: Yes (Hospitalization, Other)
  Sender: FDA-Public Use
  Company Number: US-ABBOTT-07P-163-0425080-00

PATIENT
  Age: 14 Year
  Sex: Male

DRUGS (3)
  1. CALCITRIOL [Suspect]
     Indication: HYPOPARATHYROIDISM
  2. CALCITRIOL [Suspect]
     Dosage: NOT REPORTED
  3. CALCIUM CARBONATE [Suspect]
     Indication: HYPOPARATHYROIDISM

REACTIONS (1)
  - MILK-ALKALI SYNDROME [None]
